FAERS Safety Report 5247346-5 (Version None)
Quarter: 2007Q1

REPORT INFORMATION
  Report Type: 
  Country: None (occurrence: None)
  Receive Date: 20070227
  Receipt Date: 20070216
  Transmission Date: 20070707
  Serious: Yes (Hospitalization)
  Sender: FDA-Public Use
  Company Number: FR-JNJFOC-20070204690

PATIENT
  Sex: Female
  Weight: 48.5 kg

DRUGS (12)
  1. INFLIXIMAB [Suspect]
     Route: 042
  2. INFLIXIMAB [Suspect]
     Route: 042
  3. INFLIXIMAB [Suspect]
     Route: 042
  4. INFLIXIMAB [Suspect]
     Route: 042
  5. INFLIXIMAB [Suspect]
     Route: 042
  6. INFLIXIMAB [Suspect]
     Indication: CROHN'S DISEASE
     Route: 042
  7. METHOTREXATE [Suspect]
     Indication: CROHN'S DISEASE
     Route: 065
  8. LEDERFOLINE [Concomitant]
     Indication: CROHN'S DISEASE
     Route: 065
  9. AMOXICILLIN [Concomitant]
     Indication: PYREXIA
     Route: 065
  10. ISONIAZID [Concomitant]
     Indication: THROMBOSIS PROPHYLAXIS
     Route: 065
  11. RIFAMPICIN [Concomitant]
     Indication: THROMBOSIS PROPHYLAXIS
     Route: 065
  12. CLAVULANIC ACID [Concomitant]
     Indication: PYREXIA
     Route: 065

REACTIONS (2)
  - DERMATITIS [None]
  - STOMATITIS [None]
